FAERS Safety Report 9661321 (Version 3)
Quarter: 2013Q4

REPORT INFORMATION
  Report Type: Spontaneous
  Country: GB (occurrence: GB)
  Receive Date: 20131031
  Receipt Date: 20131111
  Transmission Date: 20140711
  Serious: Yes (Disabling, Other)
  Sender: FDA-Public Use
  Company Number: GB-ABBVIE-13X-167-1071662-00

PATIENT
  Age: 37 Year
  Sex: Male
  Weight: 71 kg

DRUGS (3)
  1. EPILIM [Suspect]
     Indication: EPILEPSY
     Route: 048
  2. CLARITHROMYCIN [Interacting]
     Indication: LOWER RESPIRATORY TRACT INFECTION
     Dates: start: 20130118, end: 20130121
  3. LEVILEX [Suspect]
     Indication: EPILEPSY
     Dosage: 2000 MG
     Route: 048
     Dates: start: 20130211

REACTIONS (8)
  - Drug interaction [Unknown]
  - Convulsion [Recovered/Resolved]
  - Convulsion [Recovered/Resolved with Sequelae]
  - Decreased appetite [Recovered/Resolved with Sequelae]
  - Dizziness [Recovered/Resolved with Sequelae]
  - Fatigue [Recovered/Resolved with Sequelae]
  - Influenza like illness [Recovered/Resolved with Sequelae]
  - Hypersensitivity [Unknown]
